FAERS Safety Report 4668246-5 (Version None)
Quarter: 2005Q2

REPORT INFORMATION
  Report Type: 
  Country: None (occurrence: None)
  Receive Date: 20050523
  Receipt Date: 20050304
  Transmission Date: 20051028
  Serious: Yes (Other)
  Sender: FDA-Public Use
  Company Number: PHEH2005US02712

PATIENT
  Sex: 0

DRUGS (1)
  1. ZOMETA [Suspect]
     Dosage: UNK, UNK

REACTIONS (2)
  - JAW DISORDER [None]
  - OSTEONECROSIS [None]
